FAERS Safety Report 5587982-X (Version None)
Quarter: 2008Q1

REPORT INFORMATION
  Report Type: 
  Country: None (occurrence: None)
  Receive Date: 20080111
  Receipt Date: 20080109
  Transmission Date: 20080703
  Serious: Yes (Life-Threatening)
  Sender: FDA-Public Use
  Company Number: IT-WYE-G00863408

PATIENT
  Sex: Male

DRUGS (6)
  1. TAZOCIN [Suspect]
     Indication: EMPHYSEMA
     Dosage: NOT PROVIDED
     Dates: start: 20071218, end: 20071218
  2. MAALOX [Concomitant]
  3. BRUFEN [Concomitant]
  4. BENEXOL [Concomitant]
  5. NEXIUM [Concomitant]
  6. FERROGRAD C [Concomitant]

REACTIONS (6)
  - ALANINE AMINOTRANSFERASE INCREASED [None]
  - ASPARTATE AMINOTRANSFERASE INCREASED [None]
  - BLOOD LACTATE DEHYDROGENASE INCREASED [None]
  - GAMMA-GLUTAMYLTRANSFERASE INCREASED [None]
  - PANCYTOPENIA [None]
  - RENAL FAILURE [None]
